FAERS Safety Report 9113773 (Version 1)
Quarter: 2013Q1

REPORT INFORMATION
  Report Type: Spontaneous
  Country: US (occurrence: US)
  Receive Date: 20130129
  Receipt Date: 20130129
  Transmission Date: 20140127
  Serious: No
  Sender: FDA-Public Use
  Company Number: US-PFIZER INC-2013034966

PATIENT
  Age: 45 Year
  Sex: Female
  Weight: 70.3 kg

DRUGS (8)
  1. CHANTIX [Suspect]
     Indication: SMOKING CESSATION THERAPY
     Dosage: UNK, DAILY
     Dates: start: 20121205
  2. CHANTIX [Suspect]
     Dosage: UNK, 2X/DAY
     Dates: end: 20130120
  3. PRILOSEC [Concomitant]
     Indication: ULCER
     Dosage: UNK, DAILY
  4. WELLBUTRIN [Concomitant]
     Indication: DEPRESSION
     Dosage: UNK, DAILY
  5. PROZAC [Concomitant]
     Indication: DEPRESSION
     Dosage: UNK, DAILY
  6. LAMICTAL [Concomitant]
     Indication: DEPRESSION
     Dosage: UNK, DAILY
  7. NASONEX [Concomitant]
     Dosage: UNK, DAILY
  8. AMBIEN [Concomitant]
     Indication: DEPRESSION
     Dosage: UNK, DAILY

REACTIONS (1)
  - Drug screen false positive [Unknown]
